FAERS Safety Report 7108565-6 (Version None)
Quarter: 2010Q4

REPORT INFORMATION
  Report Type: 
  Country: None (occurrence: None)
  Receive Date: 20101117
  Receipt Date: 20100920
  Transmission Date: 20110411
  Serious: No
  Sender: FDA-Public Use
  Company Number: A0883552A

PATIENT
  Age: 58 Year

DRUGS (1)
  1. VOTRIENT [Suspect]
     Dosage: 800MGD PER DAY
     Route: 048
     Dates: start: 20100918

REACTIONS (3)
  - COUGH [None]
  - DECREASED APPETITE [None]
  - FATIGUE [None]
